FAERS Safety Report 13860547 (Version 1)
Quarter: 2017Q3

REPORT INFORMATION
  Report Type: Report from Study
  Country: None (occurrence: FR)
  Receive Date: 20170811
  Receipt Date: 20170811
  Transmission Date: 20171127
  Serious: Yes (Hospitalization)
  Sender: FDA-Public Use
  Company Number: FR-ABBVIE-17K-056-2010413-00

PATIENT
  Age: 61 Year
  Sex: Male

DRUGS (1)
  1. DUODOPA [Suspect]
     Active Substance: CARBIDOPA\LEVODOPA
     Indication: PRODUCT USED FOR UNKNOWN INDICATION
     Route: 050

REACTIONS (4)
  - Feeling abnormal [Not Recovered/Not Resolved]
  - Device issue [Not Recovered/Not Resolved]
  - Rehabilitation therapy [Unknown]
  - Tremor [Not Recovered/Not Resolved]
